FAERS Safety Report 8762997 (Version 1)
Quarter: 2012Q4

REPORT INFORMATION
  Report Type: Spontaneous
  Country: US (occurrence: None)
  Receive Date: 20120830
  Receipt Date: 20120830
  Transmission Date: 20130627
  Serious: Yes (Other)
  Sender: FDA-Public Use
  Company Number: None

PATIENT
  Sex: Female

DRUGS (2)
  1. TOPAMAX 1 TABLET [Suspect]
     Indication: HEADACHE
     Route: 048
  2. TOPAMAX 1 TABLET [Suspect]
     Indication: MIGRAINE
     Route: 048

REACTIONS (7)
  - Nausea [None]
  - Abdominal discomfort [None]
  - Dizziness [None]
  - Somnolence [None]
  - Fatigue [None]
  - Anxiety [None]
  - Nervousness [None]
